FAERS Safety Report 8412033 (Version 3)
Quarter: 2012Q4

REPORT INFORMATION
  Report Type: Report from Study
  Country: US (occurrence: US)
  Receive Date: 20120217
  Receipt Date: 20120911
  Transmission Date: 20130627
  Serious: Yes (Hospitalization, Disabling)
  Sender: FDA-Public Use
  Company Number: US-JNJFOC-20120206129

PATIENT
  Age: 15 Year
  Sex: Male
  Weight: 106 kg

DRUGS (2)
  1. REMICADE [Suspect]
     Indication: CROHN^S DISEASE
     Route: 042
     Dates: start: 20080518, end: 20110722
  2. MULTIVITAMINS [Concomitant]

REACTIONS (2)
  - Autoimmune hepatitis [Not Recovered/Not Resolved]
  - Crohn^s disease [Recovered/Resolved]
